FAERS Safety Report 5590883-4 (Version None)
Quarter: 2007Q4

REPORT INFORMATION
  Report Type: 
  Country: None (occurrence: None)
  Receive Date: 20071214
  Receipt Date: 20070510
  Transmission Date: 20080405
  Serious: Yes (Other)
  Sender: FDA-Public Use
  Company Number: 36996

PATIENT
  Age: 52 Year
  Sex: Male

DRUGS (2)
  1. CISPLATIN [Suspect]
     Indication: SQUAMOUS CELL CARCINOMA
     Dosage: 100MG/M2
     Dates: start: 20070423
  2. RADIATION THERAPY MEDICATION [Concomitant]

REACTIONS (3)
  - NAUSEA [None]
  - TINNITUS [None]
  - VOMITING [None]
